FAERS Safety Report 9240774 (Version 1)
Quarter: 2013Q1

REPORT INFORMATION
  Report Type: Spontaneous
  Country: US (occurrence: None)
  Receive Date: 20121120
  Receipt Date: 20121120
  Transmission Date: 20140127
  Serious: No
  Sender: FDA-Public Use
  Company Number: 1000037384

PATIENT
  Age: 16 Year
  Sex: Female

DRUGS (4)
  1. VIIBRYD [Suspect]
     Indication: DEPRESSION
     Dosage: 10 MG (10 MG, 1 IN 1 D), ORAL
     Route: 048
     Dates: start: 201204, end: 2012
  2. XANAX (ALPRAZOLAM) (ALPRAZOLAM) [Concomitant]
  3. LAMICTAL (LAMOTRIGINE) (LAMOTRIGINE) [Concomitant]
  4. FISH OIL (FISH OIL) (FISH OIL) [Concomitant]

REACTIONS (2)
  - Nausea [None]
  - Off label use [None]
